FAERS Safety Report 5924461-1 (Version None)
Quarter: 2008Q4

REPORT INFORMATION
  Report Type: 
  Country: None (occurrence: None)
  Receive Date: 20081020
  Receipt Date: 20080926
  Transmission Date: 20090506
  Serious: No
  Sender: FDA-Public Use
  Company Number: US-B.I. PHARMACEUTICALS,INC./RIDGEFIELD-2008-BP-14068BP

PATIENT
  Sex: Female
  Weight: 72 kg

DRUGS (1)
  1. MIRAPEX [Suspect]
     Indication: RESTLESS LEGS SYNDROME
     Dates: start: 20020601, end: 20060601

REACTIONS (3)
  - ANXIETY [None]
  - DEPRESSION [None]
  - PATHOLOGICAL GAMBLING [None]
